FAERS Safety Report 6196491-9 (Version None)
Quarter: 2009Q2

REPORT INFORMATION
  Report Type: 
  Country: None (occurrence: None)
  Receive Date: 20090520
  Receipt Date: 20090511
  Transmission Date: 20091009
  Serious: Yes (Hospitalization)
  Sender: FDA-Public Use
  Company Number: RO-JNJFOC-20090407241

PATIENT
  Sex: Female
  Weight: 65 kg

DRUGS (2)
  1. RISPOLEPT CONSTA [Suspect]
     Indication: SCHIZOPHRENIA
     Route: 030
  2. RISPOLEPT CONSTA [Suspect]
     Indication: DELIRIUM
     Route: 030

REACTIONS (5)
  - AFFECTIVE DISORDER [None]
  - AGITATION [None]
  - HOSTILITY [None]
  - SOCIAL AVOIDANT BEHAVIOUR [None]
  - SUSPICIOUSNESS [None]
